FAERS Safety Report 20579104 (Version 1)
Quarter: 2022Q1

REPORT INFORMATION
  Report Type: Spontaneous
  Country: US (occurrence: US)
  Receive Date: 20220310
  Receipt Date: 20220310
  Transmission Date: 20220423
  Serious: Yes (Hospitalization, Disabling, Other)
  Sender: FDA-Public Use
  Company Number: US-SANOFI-01005645

PATIENT
  Age: 71 Year
  Sex: Male

DRUGS (4)
  1. ALPROLIX [Suspect]
     Active Substance: EFTRENONACOG ALFA
  2. ALPROLIX [Suspect]
     Active Substance: EFTRENONACOG ALFA
  3. COVID-19 VACCINE [Concomitant]
     Indication: Immunisation
     Dosage: UNK
  4. COVID-19 VACCINE [Concomitant]
     Dosage: UNK
     Dates: start: 2021, end: 2021

REACTIONS (7)
  - Dementia [Unknown]
  - Cerebrovascular accident [Unknown]
  - Wheelchair user [Unknown]
  - Dysstasia [Unknown]
  - Stress [Unknown]
  - Tearfulness [Unknown]
  - General physical condition abnormal [Unknown]
